FAERS Safety Report 20460850 (Version 1)
Quarter: 2022Q1

REPORT INFORMATION
  Report Type: Spontaneous
  Country: US (occurrence: None)
  Receive Date: 20220210
  Receipt Date: 20220210
  Transmission Date: 20220423
  Serious: Yes (Hospitalization)
  Sender: FDA-Public Use
  Company Number: None

PATIENT
  Age: 69 Year
  Sex: Male
  Weight: 102.42 kg

DRUGS (5)
  1. SPRYCEL [Suspect]
     Active Substance: DASATINIB
     Indication: Acute lymphocytic leukaemia
     Dosage: OTHER FREQUENCY : 1 TAB PO 3-4X/WEEK;?
     Route: 048
     Dates: start: 20200528
  2. CALCIUM [Concomitant]
     Active Substance: CALCIUM
  3. MIDODRINE [Concomitant]
     Active Substance: MIDODRINE
  4. SENSIPAR [Concomitant]
     Active Substance: CINACALCET HYDROCHLORIDE
  5. PRORENAL+D [Concomitant]

REACTIONS (1)
  - Poor peripheral circulation [None]

NARRATIVE: CASE EVENT DATE: 20220210
